FAERS Safety Report 4626715-8 (Version None)
Quarter: 2005Q2

REPORT INFORMATION
  Report Type: 
  Country: None (occurrence: None)
  Receive Date: 20050405
  Receipt Date: 20050331
  Transmission Date: 20051028
  Serious: Yes (Hospitalization)
  Sender: FDA-Public Use
  Company Number: PHBS2005TR04464

PATIENT
  Sex: Female

DRUGS (2)
  1. FORADIL [Suspect]
     Indication: CHRONIC OBSTRUCTIVE PULMONARY DISEASE
     Dosage: 1 DF, BID
     Route: 048
     Dates: start: 20050330
  2. THEOPHYLLINE [Concomitant]
     Dosage: 300 MG, UNK

REACTIONS (4)
  - MEDICATION ERROR [None]
  - NAUSEA [None]
  - TREMOR [None]
  - VOMITING [None]
